FAERS Safety Report 24989792 (Version 1)
Quarter: 2025Q1

REPORT INFORMATION
  Report Type: Spontaneous
  Country: SK (occurrence: SK)
  Receive Date: 20250220
  Receipt Date: 20250220
  Transmission Date: 20250409
  Serious: Yes (Hospitalization)
  Sender: RANBAXY
  Company Number: SK-SUN PHARMACEUTICAL INDUSTRIES LTD-2025RR-495943

PATIENT
  Age: 20 Year
  Sex: Male

DRUGS (15)
  1. OLANZAPINE [Suspect]
     Active Substance: OLANZAPINE
     Indication: Psychotic disorder
     Dosage: 12.5 MILLIGRAM, DAILY
     Route: 065
  2. OLANZAPINE [Suspect]
     Active Substance: OLANZAPINE
     Dosage: 15 MILLIGRAM, DAILY
     Route: 065
  3. OLANZAPINE [Suspect]
     Active Substance: OLANZAPINE
     Dosage: 20 MILLIGRAM, DAILY
     Route: 065
  4. ARIPIPRAZOLE [Suspect]
     Active Substance: ARIPIPRAZOLE
     Indication: Psychotic disorder
     Route: 065
  5. ARIPIPRAZOLE [Suspect]
     Active Substance: ARIPIPRAZOLE
     Route: 065
  6. SERTRALINE [Suspect]
     Active Substance: SERTRALINE HYDROCHLORIDE
     Indication: Psychotic disorder
     Route: 065
  7. SERTRALINE [Suspect]
     Active Substance: SERTRALINE HYDROCHLORIDE
     Route: 065
  8. QUETIAPINE [Suspect]
     Active Substance: QUETIAPINE
     Indication: Psychotic disorder
     Route: 065
  9. VALPROIC ACID [Suspect]
     Active Substance: VALPROIC ACID
     Indication: Psychotic disorder
     Dosage: 1000 MILLIGRAM, DAILY
     Route: 065
  10. CARIPRAZINE [Suspect]
     Active Substance: CARIPRAZINE
     Indication: Psychotic disorder
     Route: 065
  11. PALIPERIDONE [Suspect]
     Active Substance: PALIPERIDONE
     Indication: Psychotic disorder
     Route: 065
  12. LITHIUM [Suspect]
     Active Substance: LITHIUM
     Indication: Psychotic disorder
     Route: 065
  13. GINKGO [Suspect]
     Active Substance: GINKGO
     Indication: Psychotic disorder
     Route: 065
  14. VITAMIN B [Suspect]
     Active Substance: VITAMIN B
     Indication: Psychotic disorder
     Route: 065
  15. PIRACETAM [Suspect]
     Active Substance: PIRACETAM
     Indication: Psychotic disorder
     Route: 065

REACTIONS (2)
  - Drug resistance [Unknown]
  - Drug ineffective [Unknown]
